FAERS Safety Report 8271180-5 (Version None)
Quarter: 2012Q2

REPORT INFORMATION
  Report Type: 
  Country: None (occurrence: None)
  Receive Date: 20120406
  Receipt Date: 20120327
  Transmission Date: 20120825
  Serious: Yes (Life-Threatening)
  Sender: FDA-Public Use
  Company Number: 1243829

PATIENT
  Age: 11 Year
  Sex: Male

DRUGS (8)
  1. SODIUM CHLORIDE [Concomitant]
  2. METHOTREXATE [Suspect]
     Indication: BONE SARCOMA
     Dosage: 12 G/M^, INTRAVENOUS DRIP
     Route: 041
  3. ETOPOSIDE [Suspect]
     Indication: EWING'S SARCOMA
     Dosage: 150 MG/M2
  4. IFOSFAMIDE [Suspect]
     Indication: EWING'S SARCOMA
     Dosage: 3 G/M^2
  5. DOXORUBICIN HCL [Suspect]
     Indication: EWING'S SARCOMA
     Dosage: 40 MG/M^2; 75 MG/M^2
  6. VINCRISTINE [Suspect]
     Indication: EWING'S SARCOMA
     Dosage: 1.5 MG/M^2
  7. CYCLOPHOSPHAMIDE [Suspect]
     Indication: EWING'S SARCOMA
     Dosage: 1.2 G/M^2
  8. CISPLATIN [Concomitant]

REACTIONS (2)
  - IMMUNE SYSTEM DISORDER [None]
  - ANAPHYLACTIC REACTION [None]
